FAERS Safety Report 8494955-6 (Version None)
Quarter: 2012Q3

REPORT INFORMATION
  Report Type: 
  Country: None (occurrence: None)
  Receive Date: 20120709
  Receipt Date: 20120627
  Transmission Date: 20120928
  Serious: Yes (Hospitalization, Other)
  Sender: FDA-Public Use
  Company Number: MX-BRISTOL-MYERS SQUIBB COMPANY-16722878

PATIENT
  Age: 66 Year
  Sex: Male
  Weight: 81 kg

DRUGS (3)
  1. IRBESARTAN [Suspect]
     Indication: HYPERTENSION
     Dosage: TABLET
     Route: 048
     Dates: start: 20060101, end: 20120501
  2. LANTUS [Suspect]
     Indication: TYPE 2 DIABETES MELLITUS
     Route: 058
     Dates: start: 20080101
  3. INSULIN GLULISINE [Suspect]
     Indication: TYPE 2 DIABETES MELLITUS
     Dosage: STRENGTH:100IU/ML INJ
     Route: 058
     Dates: start: 20080101, end: 20120501

REACTIONS (6)
  - HYPERGLYCAEMIA [None]
  - CONSTIPATION [None]
  - ABNORMAL FAECES [None]
  - RENAL FAILURE [None]
  - HYPERTENSION [None]
  - AGEUSIA [None]
